FAERS Safety Report 6470285-9 (Version None)
Quarter: 2009Q4

REPORT INFORMATION
  Report Type: 
  Country: None (occurrence: None)
  Receive Date: 20091203
  Receipt Date: 20091126
  Transmission Date: 20100525
  Serious: Yes (Other)
  Sender: FDA-Public Use
  Company Number: CHPA2009NL22747

PATIENT
  Sex: Male

DRUGS (1)
  1. SCOPOLAMINE [Suspect]
     Dosage: 1 DF, Q72H
     Route: 062
     Dates: start: 20091103, end: 20091109

REACTIONS (2)
  - CONFUSIONAL STATE [None]
  - GAIT DISTURBANCE [None]
